FAERS Safety Report 5995267-2 (Version None)
Quarter: 2008Q4

REPORT INFORMATION
  Report Type: 
  Country: None (occurrence: None)
  Receive Date: 20081212
  Receipt Date: 20080918
  Transmission Date: 20090506
  Serious: No
  Sender: FDA-Public Use
  Company Number: US-ABBOTT-08P-163-0478300-00

PATIENT
  Sex: Female
  Weight: 90 kg

DRUGS (6)
  1. HUMIRA [Suspect]
     Indication: RHEUMATOID ARTHRITIS
     Route: 050
     Dates: start: 20070101
  2. METHOTREXATE [Concomitant]
     Indication: RHEUMATOID ARTHRITIS
     Route: 048
     Dates: start: 20060101
  3. PREGABALIN [Concomitant]
     Indication: PAIN
     Route: 048
     Dates: start: 20080801
  4. PREGABALIN [Concomitant]
     Indication: FIBROMYALGIA
  5. HYDROXYCHLOROQUINE SULFATE [Concomitant]
     Indication: RHEUMATOID ARTHRITIS
     Route: 048
     Dates: start: 20070401
  6. VENLAFAXINE HCL [Concomitant]
     Indication: DEPRESSION
     Route: 048
     Dates: start: 20060101

REACTIONS (4)
  - DEPRESSION [None]
  - HEPATIC ENZYME INCREASED [None]
  - LOCALISED INFECTION [None]
  - VOMITING [None]
